FAERS Safety Report 7703618-3 (Version None)
Quarter: 2011Q3

REPORT INFORMATION
  Report Type: 
  Country: None (occurrence: None)
  Receive Date: 20110823
  Receipt Date: 20110818
  Transmission Date: 20111222
  Serious: Yes (Death, Hospitalization, Other)
  Sender: FDA-Public Use
  Company Number: PHHY2011BR30639

PATIENT
  Sex: Male

DRUGS (5)
  1. TEGRETOL [Suspect]
     Indication: CONVULSION
     Dosage: 300 MG, UNK
  2. MEMANTINE HYDROCHLORIDE [Concomitant]
     Dosage: 10 MG, UNK
  3. CLONAZEPAM [Concomitant]
     Indication: NERVOUSNESS
     Dosage: UNK UKN, UNK
  4. TRILEPTAL [Suspect]
     Dosage: 600 MG, BID
     Route: 048
  5. OLANZAPINE [Concomitant]
     Dosage: 10 MG, UNK

REACTIONS (6)
  - BRONCHITIS [None]
  - URINARY TRACT INFECTION [None]
  - SEPTIC SHOCK [None]
  - DEMENTIA ALZHEIMER'S TYPE [None]
  - PNEUMONIA [None]
  - MULTI-ORGAN FAILURE [None]
